FAERS Safety Report 5484320-8 (Version None)
Quarter: 2007Q4

REPORT INFORMATION
  Report Type: 
  Country: None (occurrence: None)
  Receive Date: 20071012
  Receipt Date: 20071008
  Transmission Date: 20080405
  Serious: Yes (Other)
  Sender: FDA-Public Use
  Company Number: US-BOEHRINGER INGELHEIM PHARMACEUTICALS, INC.-2007-BP-22387BP

PATIENT
  Age: 54 Year
  Sex: Male

DRUGS (2)
  1. MIRAPEX [Suspect]
  2. AMBIEN CR [Concomitant]

REACTIONS (2)
  - HALLUCINATION, AUDITORY [None]
  - INJURY [None]
